FAERS Safety Report 19272889 (Version 1)
Quarter: 2021Q2

REPORT INFORMATION
  Report Type: Spontaneous
  Country: JP (occurrence: JP)
  Receive Date: 20210518
  Receipt Date: 20210518
  Transmission Date: 20210717
  Serious: Yes (Other)
  Sender: FDA-Public Use
  Company Number: JP-TAKEDA-2021TJP023204

PATIENT
  Sex: Male

DRUGS (1)
  1. TRINTELLIX [Suspect]
     Active Substance: VORTIOXETINE HYDROBROMIDE
     Indication: DEPRESSION
     Dosage: 20 MILLIGRAM
     Route: 048

REACTIONS (8)
  - Hallucination [Unknown]
  - Tremor [Unknown]
  - Alcohol withdrawal syndrome [Unknown]
  - Product dose omission in error [Unknown]
  - Headache [Unknown]
  - Labelled drug-food interaction medication error [Unknown]
  - Tinnitus [Unknown]
  - Intentional product misuse [Unknown]
